FAERS Safety Report 7282365-9 (Version None)
Quarter: 2010Q4

REPORT INFORMATION
  Report Type: 
  Country: None (occurrence: None)
  Receive Date: 20101221
  Receipt Date: 20101015
  Transmission Date: 20110411
  Serious: Yes (Other)
  Sender: FDA-Public Use
  Company Number: WAES 1010USA01884

PATIENT
  Age: 59 Year
  Sex: Male

DRUGS (15)
  1. JANUVIA [Suspect]
     Indication: TYPE 2 DIABETES MELLITUS
     Dosage: 100 MG/DAILY/PO
     Route: 048
     Dates: start: 20100920, end: 20101001
  2. ALTACE [Concomitant]
  3. AMBIEN CR [Concomitant]
  4. COREG [Concomitant]
  5. CYMBALTA [Concomitant]
  6. KLONOPIN [Concomitant]
  7. NIASPAN [Concomitant]
  8. OXYCONTIN [Concomitant]
  9. PLAVIX [Concomitant]
  10. PROVIGIL [Concomitant]
  11. RANEXA [Concomitant]
  12. ROXICODONE [Concomitant]
  13. TRICOR [Concomitant]
  14. ALLOPURINOL [Concomitant]
  15. TRICHLOROACETIC ACID [Concomitant]

REACTIONS (3)
  - JOINT SWELLING [None]
  - OEDEMA PERIPHERAL [None]
  - STEVENS-JOHNSON SYNDROME [None]
